FAERS Safety Report 6581815-0 (Version None)
Quarter: 2010Q1

REPORT INFORMATION
  Report Type: 
  Country: None (occurrence: None)
  Receive Date: 20100215
  Receipt Date: 20100211
  Transmission Date: 20100710
  Serious: Yes (Death, Hospitalization)
  Sender: FDA-Public Use
  Company Number: PHHY2010AR07900

PATIENT
  Sex: Female

DRUGS (1)
  1. DIOVAN HCT [Suspect]
     Indication: BLOOD PRESSURE
     Dosage: 80/12.5 MG

REACTIONS (4)
  - CARDIAC DISORDER [None]
  - DEATH [None]
  - INTESTINAL PERFORATION [None]
  - SURGERY [None]
